FAERS Safety Report 9288043 (Version 1)
Quarter: 2012Q4

REPORT INFORMATION
  Report Type: Spontaneous
  Country: JP (occurrence: None)
  Receive Date: 20120927
  Receipt Date: 20120927
  Transmission Date: 20130627
  Serious: Yes (Death)
  Sender: FDA-Public Use
  Company Number: JP-20120044

PATIENT
  Age: 86 Year
  Sex: Male

DRUGS (2)
  1. LIPIODOL ULTRA [Suspect]
     Indication: TRANSCATHETER ARTERIAL EMBOLIZATION
     Route: 013
     Dates: start: 20070921, end: 20070921
  2. FARMORUBICIN [Suspect]
     Indication: TRANSCATHETER ARTERIAL EMBOLIZATION
     Route: 013
     Dates: start: 20070921, end: 20070921

REACTIONS (12)
  - Interstitial lung disease [None]
  - Off label use [None]
  - Renal failure [None]
  - Asthma [None]
  - Acute respiratory distress syndrome [None]
  - Blood potassium increased [None]
  - Disseminated intravascular coagulation [None]
  - Ventricular extrasystoles [None]
  - Ventricular tachycardia [None]
  - Cardio-respiratory arrest [None]
  - Pneumonia bacterial [None]
  - Pneumonia aspiration [None]
